FAERS Safety Report 7295146-7 (Version None)
Quarter: 2011Q1

REPORT INFORMATION
  Report Type: 
  Country: None (occurrence: None)
  Receive Date: 20110211
  Receipt Date: 20110211
  Transmission Date: 20110831
  Serious: Yes (Life-Threatening, Disabling, Other)
  Sender: FDA-Public Use
  Company Number: None

PATIENT
  Age: 44 Year
  Sex: Female
  Weight: 97.5234 kg

DRUGS (4)
  1. CYMBALTA [Suspect]
     Indication: DEPRESSION
     Dosage: 60 MG  2 X PER DAY PO
     Route: 048
     Dates: start: 20101001, end: 20110101
  2. CYMBALTA [Suspect]
     Indication: PAIN
     Dosage: 60 MG  2 X PER DAY PO
     Route: 048
     Dates: start: 20101001, end: 20110101
  3. CYMBALTA [Suspect]
     Indication: FIBROMYALGIA
     Dosage: 60 MG  2 X PER DAY PO
     Route: 048
     Dates: start: 20101001, end: 20110101
  4. CYMBALTA [Suspect]
     Indication: NEURALGIA
     Dosage: 60 MG  2 X PER DAY PO
     Route: 048
     Dates: start: 20101001, end: 20110101

REACTIONS (1)
  - BLOOD GLUCOSE INCREASED [None]
